FAERS Safety Report 15664628 (Version 2)
Quarter: 2018Q4

REPORT INFORMATION
  Report Type: Spontaneous
  Country: US (occurrence: US)
  Receive Date: 20181128
  Receipt Date: 20181128
  Transmission Date: 20190205
  Serious: Yes (Other)
  Sender: FDA-Public Use
  Company Number: US-MACLEODS PHARMACEUTICALS US LTD-MAC2018018757

PATIENT

DRUGS (4)
  1. FLUTICASONE PROPIONATE. [Suspect]
     Active Substance: FLUTICASONE PROPIONATE
     Indication: PNEUMONIA
     Dosage: UNK UNK, BID
     Route: 055
  2. LEVOFLOXACIN TABLET [Suspect]
     Active Substance: LEVOFLOXACIN
     Dosage: 750 MILLIGRAM TWO DOSES OF LEVOFLOXACIN TABLETS
     Route: 048
  3. LEVOFLOXACIN TABLET [Suspect]
     Active Substance: LEVOFLOXACIN
     Indication: PNEUMONIA
     Dosage: 500 MILLIGRAM FOR 48 HOURS
     Route: 048
  4. CIPROFLOXACIN. [Suspect]
     Active Substance: CIPROFLOXACIN
     Indication: PNEUMONIA
     Dosage: 400 UNK
     Route: 042

REACTIONS (4)
  - Conjunctival hyperaemia [Unknown]
  - Tendon rupture [Recovered/Resolved]
  - Tendon disorder [Unknown]
  - Ectropion [Recovered/Resolved]
